FAERS Safety Report 6522647-9 (Version None)
Quarter: 2009Q4

REPORT INFORMATION
  Report Type: 
  Country: None (occurrence: None)
  Receive Date: 20091230
  Receipt Date: 20091221
  Transmission Date: 20100525
  Serious: Yes (Hospitalization)
  Sender: FDA-Public Use
  Company Number: US-ABBOTT-09P-163-0616023-00

PATIENT
  Age: 52 Year
  Sex: Female

DRUGS (7)
  1. DEPAKOTE [Suspect]
     Indication: BIPOLAR DISORDER
     Route: 048
     Dates: start: 20091101
  2. LEXAPRO [Suspect]
     Indication: DEPRESSION
     Route: 048
     Dates: start: 19990101, end: 20091001
  3. LEXAPRO [Suspect]
     Indication: ANXIETY
     Route: 048
     Dates: start: 20091001
  4. PROMETHAZINE [Suspect]
     Indication: BIPOLAR DISORDER
     Route: 048
     Dates: start: 20091101
  5. RISPERIDONE [Suspect]
     Indication: BIPOLAR DISORDER
     Route: 048
     Dates: start: 20091101
  6. KLONOPIN [Suspect]
     Indication: ANXIETY
     Route: 048
  7. ACTIVELLA [Suspect]
     Indication: HORMONE REPLACEMENT THERAPY

REACTIONS (8)
  - ABDOMINAL DISCOMFORT [None]
  - BIPOLAR DISORDER [None]
  - DEPRESSION [None]
  - HEADACHE [None]
  - INTRACRANIAL ANEURYSM [None]
  - SEDATION [None]
  - SINUSITIS [None]
  - SOMNOLENCE [None]
